FAERS Safety Report 21044712 (Version 1)
Quarter: 2022Q3

REPORT INFORMATION
  Report Type: Report from Study
  Country: US (occurrence: US)
  Receive Date: 20220705
  Receipt Date: 20220705
  Transmission Date: 20221026
  Serious: Yes (Hospitalization)
  Sender: FDA-Public Use
  Company Number: US-TAKEDA-US201912825

PATIENT
  Sex: Female

DRUGS (8)
  1. TEDUGLUTIDE [Suspect]
     Active Substance: TEDUGLUTIDE
     Indication: Short-bowel syndrome
     Dosage: 3.06 MILLIGRAM, QD
     Route: 058
     Dates: start: 20181012
  2. TEDUGLUTIDE [Suspect]
     Active Substance: TEDUGLUTIDE
     Indication: Short-bowel syndrome
     Dosage: 3.06 MILLIGRAM, QD
     Route: 058
     Dates: start: 20181012
  3. TEDUGLUTIDE [Suspect]
     Active Substance: TEDUGLUTIDE
     Indication: Short-bowel syndrome
     Dosage: 3.06 MILLIGRAM, QD
     Route: 058
     Dates: start: 20181012
  4. TEDUGLUTIDE [Suspect]
     Active Substance: TEDUGLUTIDE
     Indication: Short-bowel syndrome
     Dosage: 3.06 MILLIGRAM, QD
     Route: 058
     Dates: start: 20181012
  5. TEDUGLUTIDE [Suspect]
     Active Substance: TEDUGLUTIDE
     Indication: Crohn^s disease
     Dosage: 3.06 MILLIGRAM, QD
     Route: 058
     Dates: start: 20210101
  6. TEDUGLUTIDE [Suspect]
     Active Substance: TEDUGLUTIDE
     Indication: Crohn^s disease
     Dosage: 3.06 MILLIGRAM, QD
     Route: 058
     Dates: start: 20210101
  7. TEDUGLUTIDE [Suspect]
     Active Substance: TEDUGLUTIDE
     Indication: Crohn^s disease
     Dosage: 3.06 MILLIGRAM, QD
     Route: 058
     Dates: start: 20210101
  8. TEDUGLUTIDE [Suspect]
     Active Substance: TEDUGLUTIDE
     Indication: Crohn^s disease
     Dosage: 3.06 MILLIGRAM, QD
     Route: 058
     Dates: start: 20210101

REACTIONS (5)
  - Hospitalisation [Unknown]
  - Weight increased [Unknown]
  - Urine output decreased [Unknown]
  - Fluid retention [Unknown]
  - Product container issue [Unknown]
